FAERS Safety Report 10883100 (Version 1)
Quarter: 2015Q1

REPORT INFORMATION
  Report Type: Spontaneous
  Country: US (occurrence: None)
  Receive Date: 20150226
  Receipt Date: 20150226
  Transmission Date: 20150721
  Serious: Yes (Other)
  Sender: FDA-Public Use
  Company Number: None

PATIENT
  Age: 25 Year
  Sex: Female
  Weight: 113.4 kg

DRUGS (1)
  1. GABAPENTIN 300 MG [Suspect]
     Active Substance: GABAPENTIN
     Indication: FIBROMYALGIA
     Dosage: 2 PILLS
     Route: 048

REACTIONS (11)
  - Vertigo [None]
  - Hyperhidrosis [None]
  - Rash [None]
  - Amenorrhoea [None]
  - Photophobia [None]
  - Tremor [None]
  - Weight increased [None]
  - Insomnia [None]
  - Migraine [None]
  - Dizziness [None]
  - Hyperacusis [None]

NARRATIVE: CASE EVENT DATE: 20150225
